FAERS Safety Report 8802719 (Version 3)
Quarter: 2012Q4

REPORT INFORMATION
  Report Type: 
  Country: US (occurrence: US)
  Receive Date: 20120921
  Receipt Date: 20121205
  Transmission Date: 20130627
  Serious: No
  Sender: FDA-Public Use
  Company Number: US-ASTRAZENECA-2012SE72911

PATIENT
  Age: 64 Year
  Sex: Female

DRUGS (2)
  1. CRESTOR [Suspect]
     Route: 048
  2. CLARITIN [Concomitant]

REACTIONS (5)
  - Nasal congestion [Unknown]
  - Multiple allergies [Unknown]
  - Age-related macular degeneration [Unknown]
  - Hypertension [Unknown]
  - Blood cholesterol increased [Unknown]
